FAERS Safety Report 7843074-8 (Version None)
Quarter: 2011Q4

REPORT INFORMATION
  Report Type: 
  Country: None (occurrence: None)
  Receive Date: 20111024
  Receipt Date: 20111024
  Transmission Date: 20120403
  Serious: Yes (Death)
  Sender: FDA-Public Use
  Company Number: None

PATIENT
  Age: 62 Year
  Sex: Male
  Weight: 149.687 kg

DRUGS (1)
  1. DILAUDID [Suspect]
     Indication: ANALGESIC THERAPY
     Dosage: 0.5 MG/HR IV CONTINUOUS 0.2 MG Q 20MIN. PRN
     Route: 042

REACTIONS (2)
  - CARDIO-RESPIRATORY ARREST [None]
  - INCORRECT DOSE ADMINISTERED [None]
